FAERS Safety Report 22644475 (Version 1)
Quarter: 2023Q2

REPORT INFORMATION
  Report Type: Spontaneous
  Country: NL (occurrence: NL)
  Receive Date: 20230627
  Receipt Date: 20230627
  Transmission Date: 20230722
  Serious: Yes (Other)
  Sender: FDA-Public Use
  Company Number: None

PATIENT
  Sex: Male
  Weight: 80 kg

DRUGS (6)
  1. QUETIAPINE [Suspect]
     Active Substance: QUETIAPINE
     Indication: Restlessness
     Dosage: 25 MILLIGRAM, QD (1X 25MG)
     Route: 065
     Dates: start: 20220330
  2. QUETIAPINE [Suspect]
     Active Substance: QUETIAPINE
     Dosage: 100 MILLIGRAM, BID (2X PER DAY 100 MG 08.00
     Route: 065
     Dates: start: 20220330
  3. LORAZEPAM [Suspect]
     Active Substance: LORAZEPAM
     Indication: Restlessness
     Dosage: 1 MILLIGRAM
     Route: 065
     Dates: start: 20201215
  4. CITALOPRAM [Suspect]
     Active Substance: CITALOPRAM HYDROBROMIDE
     Indication: Restlessness
     Dosage: 1 DOSAGE FORM, QD (1X PER DAY 08.00 A.M)
     Route: 065
     Dates: start: 20211110
  5. MIDAZOLAM [Suspect]
     Active Substance: MIDAZOLAM
     Indication: Sleep disorder
     Dosage: EVERY EVENING BEFORE GOING TO SLEEP MAX 2 TIMES
     Route: 065
     Dates: start: 20220303
  6. ACETAMINOPHEN\ASPIRIN\CAFFEINE [Suspect]
     Active Substance: ACETAMINOPHEN\ASPIRIN\CAFFEINE
     Indication: Headache
     Dosage: QD (MAXIMUM 1000 MG 4 PER DAY)
     Route: 065
     Dates: start: 20211123

REACTIONS (2)
  - Fall [Not Recovered/Not Resolved]
  - Vomiting [Not Recovered/Not Resolved]
